FAERS Safety Report 4379546-0 (Version None)
Quarter: 2004Q2

REPORT INFORMATION
  Report Type: 
  Country: None (occurrence: None)
  Receive Date: 20040614
  Receipt Date: 20040601
  Transmission Date: 20050107
  Serious: Yes (Other)
  Sender: FDA-Public Use
  Company Number: 2004037796

PATIENT
  Sex: Female

DRUGS (1)
  1. GEODON [Suspect]
     Indication: ILL-DEFINED DISORDER

REACTIONS (4)
  - ANKLE FRACTURE [None]
  - DRUG INTERACTION [None]
  - POST PROCEDURAL COMPLICATION [None]
  - PSYCHOTIC DISORDER [None]
